FAERS Safety Report 6474009-0 (Version None)
Quarter: 2009Q4

REPORT INFORMATION
  Report Type: 
  Country: None (occurrence: None)
  Receive Date: 20091204
  Receipt Date: 20091125
  Transmission Date: 20100525
  Serious: Yes (Other)
  Sender: FDA-Public Use
  Company Number: GB-JNJFOC-20091007752

PATIENT
  Age: 67 Year
  Sex: Male
  Weight: 97 kg

DRUGS (12)
  1. REMICADE [Suspect]
     Indication: RHEUMATOID ARTHRITIS
     Dosage: 38 INFUSIONS
     Route: 042
     Dates: start: 20071119
  2. SIMVASTATIN [Concomitant]
  3. AZATHIOPRINE [Concomitant]
  4. AZATHIOPRINE [Concomitant]
  5. PREDNISOLONE [Concomitant]
  6. ASPIRIN [Concomitant]
  7. CLOPIDOGREL [Concomitant]
  8. DICLOFENAC [Concomitant]
  9. DIHYDROCODEINE BITARTRATE INJ [Concomitant]
  10. ISOSORBIDE [Concomitant]
  11. LISINOPRIL [Concomitant]
  12. METOPROLOL TARTRATE [Concomitant]

REACTIONS (2)
  - HEPATIC STEATOSIS [None]
  - TYPE 2 DIABETES MELLITUS [None]
